FAERS Safety Report 5369083-9 (Version None)
Quarter: 2007Q2

REPORT INFORMATION
  Report Type: 
  Country: None (occurrence: None)
  Receive Date: 20070625
  Receipt Date: 20070126
  Transmission Date: 20071010
  Serious: No
  Sender: FDA-Public Use
  Company Number: US-ASTRAZENECA-2007UW01650

PATIENT
  Age: 58 Year
  Sex: Male
  Weight: 70.3 kg

DRUGS (1)
  1. CRESTOR [Suspect]
     Indication: DYSLIPIDAEMIA
     Route: 048

REACTIONS (2)
  - HYPOAESTHESIA [None]
  - PERIPHERAL COLDNESS [None]
